FAERS Safety Report 23711924 (Version 1)
Quarter: 2024Q2

REPORT INFORMATION
  Report Type: Spontaneous
  Country: US (occurrence: US)
  Receive Date: 20240405
  Receipt Date: 20240405
  Transmission Date: 20240715
  Serious: No
  Sender: FDA-Public Use
  Company Number: US-E2BLSMVVAL-SPO/USA/24/0005050

PATIENT

DRUGS (1)
  1. OMEGA-3 FATTY ACIDS\VITAMINS [Suspect]
     Active Substance: OMEGA-3 FATTY ACIDS\VITAMINS
     Indication: Product used for unknown indication

REACTIONS (2)
  - Nausea [Unknown]
  - Illness [Unknown]
